FAERS Safety Report 4475683-0 (Version None)
Quarter: 2004Q3

REPORT INFORMATION
  Report Type: 
  Country: None (occurrence: None)
  Receive Date: 20040923
  Receipt Date: 20040716
  Transmission Date: 20050211
  Serious: No
  Sender: FDA-Public Use
  Company Number: USA040772807

PATIENT
  Age: 84 Year
  Sex: Female
  Weight: 84 kg

DRUGS (3)
  1. FORTEO [Suspect]
     Indication: OSTEOPOROSIS
     Dosage: 20 UG/1 DAY
     Dates: start: 20040611
  2. CALCITRIOL [Concomitant]
  3. FISH OIL [Concomitant]

REACTIONS (2)
  - JOINT STIFFNESS [None]
  - NAUSEA [None]
